FAERS Safety Report 6341457-9 (Version None)
Quarter: 2009Q3

REPORT INFORMATION
  Report Type: 
  Country: None (occurrence: None)
  Receive Date: 20090904
  Receipt Date: 20090826
  Transmission Date: 20100115
  Serious: Yes (Hospitalization)
  Sender: FDA-Public Use
  Company Number: US-ABBOTT-09P-163-0568128-00

PATIENT
  Sex: Male
  Weight: 79 kg

DRUGS (12)
  1. TRILIPIX [Suspect]
     Indication: DYSLIPIDAEMIA
     Route: 048
     Dates: start: 20090320, end: 20090329
  2. TRILIPIX [Suspect]
     Route: 048
     Dates: start: 20090401, end: 20090402
  3. ATORVASTATIN [Concomitant]
     Indication: DYSLIPIDAEMIA
     Dates: start: 20090120, end: 20090209
  4. ATORVASTATIN [Concomitant]
     Dates: start: 20090210, end: 20090412
  5. FISH OIL [Concomitant]
     Indication: BLOOD CHOLESTEROL
     Dates: start: 20080301, end: 20090119
  6. PRAVASTATIN [Concomitant]
     Indication: BLOOD CHOLESTEROL
     Dates: start: 20080301, end: 20081201
  7. CLONAZEPAM [Concomitant]
     Indication: DEPRESSION
     Dates: start: 20070101
  8. ZOLPIDEM [Concomitant]
     Indication: DEPRESSION
     Dates: start: 20070101
  9. MAXALT [Concomitant]
     Indication: MIGRAINE
     Dates: start: 20090428, end: 20090430
  10. PERCOCET [Concomitant]
     Indication: BACK PAIN
     Dosage: 7.5/325 MILLIGRAM
     Dates: start: 20040101
  11. AMBIEN [Concomitant]
     Indication: DEPRESSION
     Dates: start: 20070101
  12. ASPIRIN [Concomitant]
     Indication: ROUTINE HEALTH MAINTENANCE
     Dates: start: 20090403

REACTIONS (1)
  - NON-CARDIAC CHEST PAIN [None]
